FAERS Safety Report 9992650 (Version 2)
Quarter: 2014Q1

REPORT INFORMATION
  Report Type: Spontaneous
  Country: FR (occurrence: FR)
  Receive Date: 20140310
  Receipt Date: 20140313
  Transmission Date: 20141002
  Serious: Yes (Hospitalization, Other)
  Sender: FDA-Public Use
  Company Number: FR-MERCK-1403FRA002760

PATIENT
  Age: 85 Year
  Sex: Male

DRUGS (5)
  1. NORSET [Suspect]
     Indication: DEPRESSION
     Dosage: 15 MG, QD
     Route: 048
     Dates: start: 20140211, end: 20140217
  2. DIFFU-K [Concomitant]
     Dosage: 600 MG, TID
     Route: 048
     Dates: start: 201304
  3. SERESTA [Concomitant]
     Dosage: 5 MG, BID
     Route: 048
     Dates: start: 201304
  4. INNOHEP [Concomitant]
     Dosage: 1 DF, QD
     Route: 058
     Dates: start: 201305
  5. XALATAN [Concomitant]
     Dosage: 1 DF, QD
     Route: 047
     Dates: start: 201305

REACTIONS (2)
  - Hyponatraemia [Recovered/Resolved]
  - Coma [Recovered/Resolved]
